FAERS Safety Report 8772614 (Version 1)
Quarter: 2012Q4

REPORT INFORMATION
  Report Type: 
  Country: US (occurrence: US)
  Receive Date: 20120905
  Receipt Date: 20120905
  Transmission Date: 20130627
  Serious: Yes (Other)
  Sender: FDA-Public Use
  Company Number: US-BAYER-2012-090760

PATIENT
  Age: 42 Year
  Sex: Female
  Weight: 73.02 kg

DRUGS (9)
  1. YASMIN [Suspect]
  2. FLONASE [Concomitant]
     Dosage: 2 sprays every day
     Route: 045
     Dates: start: 20050524
  3. ALLEGRA-D [FEXOFENADINE,PSEUDOEPHEDRINE HYDROCHLORIDE] [Concomitant]
     Dosage: UNK UNK, BID
     Route: 048
     Dates: start: 20050524
  4. ALBUTEROL [Concomitant]
     Dosage: UNK
     Dates: start: 20050524
  5. OMNICEF [Concomitant]
     Dosage: UNK UNK, 2 QD for 10 days
     Route: 048
     Dates: start: 20050419
  6. ULTRACET [Concomitant]
     Dosage: every 6 hours prn
     Route: 048
     Dates: start: 20050419
  7. CYCLOBENZAPRINE [Concomitant]
     Indication: MUSCLE RELAXANT THERAPY
     Dosage: every bedtime up to TID
     Route: 048
     Dates: start: 20050419
  8. AMOXICILLIN [Concomitant]
     Dosage: 400 mg/5 mL, 2 TES
     Route: 048
     Dates: start: 20050623
  9. HYDROCODONE W/APAP [Concomitant]
     Dosage: 5 to 7.5/500 mg, 1  tablet Q 4 to 6 H prn; 2 [to] 3 TES Q6H prn
     Route: 048
     Dates: start: 20050623

REACTIONS (1)
  - Deep vein thrombosis [None]
